APPROVED DRUG PRODUCT: CHLOROTHIAZIDE
Active Ingredient: CHLOROTHIAZIDE
Strength: 500MG
Dosage Form/Route: TABLET;ORAL
Application: A087736 | Product #001
Applicant: HIKMA INTERNATIONAL PHARMACEUTICALS LLC
Approved: Jul 14, 1982 | RLD: No | RS: No | Type: DISCN